FAERS Safety Report 7661671 (Version 4)
Quarter: 2019Q1

REPORT INFORMATION
  Report Type: Spontaneous
  Country: NL (occurrence: NL)
  Receive Date: 20101109
  Receipt Date: 20190322
  Transmission Date: 20190418
  Serious: Yes (Hospitalization, Other)
  Sender: FDA-Public Use
  Company Number: NL-AMGEN-NLDSP2010002099

PATIENT
  Age: 56 Year
  Sex: Female
  Weight: 59 kg

DRUGS (9)
  1. ENBREL [Suspect]
     Active Substance: ETANERCEPT
     Indication: RHEUMATOID ARTHRITIS
     Dosage: 50 MILLIGRAM, QWK
     Route: 065
     Dates: start: 2008, end: 201007
  2. ENBREL [Suspect]
     Active Substance: ETANERCEPT
     Dosage: 50 MILLIGRAM, QWK (1 TIME PER WEEK)
     Route: 065
     Dates: start: 201010
  3. FOLIC ACID. [Concomitant]
     Active Substance: FOLIC ACID
     Dosage: UNK
  4. PREDNISONE. [Concomitant]
     Active Substance: PREDNISONE
     Dosage: UNK
  5. OMEPRAZOLE. [Concomitant]
     Active Substance: OMEPRAZOLE
     Dosage: UNK
  6. METHOTREXATE SODIUM. [Concomitant]
     Active Substance: METHOTREXATE SODIUM
     Dosage: UNK
  7. DICLOFENAC [Concomitant]
     Active Substance: DICLOFENAC
     Dosage: UNK
  8. PLAQUENIL S [Concomitant]
     Active Substance: HYDROXYCHLOROQUINE SULFATE
     Dosage: UNK
  9. ZALDIAR [Concomitant]
     Active Substance: ACETAMINOPHEN\TRAMADOL HYDROCHLORIDE
     Dosage: UNK

REACTIONS (6)
  - Vocal cord disorder [Recovering/Resolving]
  - Vocal cord inflammation [Unknown]
  - Biopsy vocal cord abnormal [Unknown]
  - Vocal cord polyp [Unknown]
  - Bursitis [Unknown]
  - Mass [Recovered/Resolved]

NARRATIVE: CASE EVENT DATE: 2009
